FAERS Safety Report 8880298 (Version 2)
Quarter: 2012Q4

REPORT INFORMATION
  Report Type: 
  Country: NL (occurrence: NL)
  Receive Date: 20121101
  Receipt Date: 20121130
  Transmission Date: 20130627
  Serious: Yes (Other)
  Sender: FDA-Public Use
  Company Number: NL-PFIZER INC-2012266528

PATIENT
  Age: 53 Year
  Sex: Male
  Weight: 82 kg

DRUGS (8)
  1. FLUCONAZOLE [Suspect]
     Indication: MENINGITIS CRYPTOCOCCAL
     Dosage: 200 mg, 1x/day
     Route: 048
     Dates: start: 200806, end: 201111
  2. CALMURID [Concomitant]
     Route: 048
  3. DOVOBET [Concomitant]
     Route: 048
  4. DUOTRAV [Concomitant]
     Dosage: UNK
  5. RISPERDAL [Concomitant]
     Dosage: 2 mg, 1x/day
  6. TOBRADEX [Concomitant]
  7. TRUVADA [Concomitant]
     Dosage: UNK
  8. VIRAMUNE [Concomitant]
     Dosage: 400 mg, 1x/day

REACTIONS (2)
  - Pancytopenia [Recovered/Resolved]
  - Low density lipoprotein increased [Recovered/Resolved]
